FAERS Safety Report 7634268-5 (Version None)
Quarter: 2011Q3

REPORT INFORMATION
  Report Type: 
  Country: None (occurrence: None)
  Receive Date: 20110725
  Receipt Date: 20110718
  Transmission Date: 20111222
  Serious: Yes (Life-Threatening, Hospitalization, Other)
  Sender: FDA-Public Use
  Company Number: US-BAYER-201029732NA

PATIENT
  Age: 30 Year
  Sex: Female
  Weight: 51.701 kg

DRUGS (5)
  1. YAZ [Suspect]
     Indication: CONTRACEPTION
     Dosage: UNK
     Route: 048
     Dates: start: 20070101, end: 20080603
  2. ZYRTEC [Concomitant]
     Indication: MULTIPLE ALLERGIES
     Dosage: 10 MG, QD
     Dates: start: 20020101, end: 20090101
  3. YASMIN [Suspect]
     Indication: MENSTRUATION IRREGULAR
  4. YAZ [Suspect]
     Indication: MENSTRUATION IRREGULAR
  5. YASMIN [Suspect]
     Indication: CONTRACEPTION
     Dosage: UNK
     Route: 048
     Dates: start: 20030307, end: 20070101

REACTIONS (3)
  - ACUTE MYOCARDIAL INFARCTION [None]
  - CHEST PAIN [None]
  - PRINZMETAL ANGINA [None]
